FAERS Safety Report 16187785 (Version 2)
Quarter: 2019Q4

REPORT INFORMATION
  Report Type: Report from Study
  Country: DE (occurrence: DE)
  Receive Date: 20190412
  Receipt Date: 20191212
  Transmission Date: 20200122
  Serious: Yes (Death, Other)
  Sender: FDA-Public Use
  Company Number: DE-TEVA-2019-DE-1034587

PATIENT
  Age: 79 Year
  Sex: Female
  Weight: 62 kg

DRUGS (20)
  1. POMALIDOMIDE [Suspect]
     Active Substance: POMALIDOMIDE
     Route: 048
     Dates: start: 20151014, end: 20151103
  2. DEXAMETHASONE. [Suspect]
     Active Substance: DEXAMETHASONE
     Dates: start: 201303, end: 201508
  3. TORASEMID BETA [Concomitant]
     Indication: OEDEMA
     Dosage: NOT PROVIDED
     Route: 048
     Dates: start: 20160518
  4. DEXAMETHASONE. [Suspect]
     Active Substance: DEXAMETHASONE
     Dosage: 20 MG
     Route: 065
     Dates: start: 20151014, end: 20151104
  5. OMEPRAZOLE. [Concomitant]
     Active Substance: OMEPRAZOLE
     Indication: PROPHYLAXIS
     Dosage: 40MG
     Route: 041
     Dates: start: 201302
  6. BROMAZEPAM RATIOPHARM [Concomitant]
     Indication: INITIAL INSOMNIA
  7. DARATUMUMAB [Concomitant]
     Active Substance: DARATUMUMAB
     Indication: PRODUCT USED FOR UNKNOWN INDICATION
     Route: 065
     Dates: start: 20160802, end: 20161130
  8. ELIQUIS [Concomitant]
     Active Substance: APIXABAN
     Indication: ATRIAL FIBRILLATION
     Dosage: 2.5 MILLIGRAM DAILY; 5MG
     Route: 048
     Dates: start: 2012
  9. ZOMETA [Concomitant]
     Active Substance: ZOLEDRONIC ACID
     Indication: OSTEOLYSIS
     Dosage: 4MG
     Route: 041
     Dates: start: 20110304
  10. SIMVASTATIN-RATIOPHARM [Concomitant]
     Active Substance: SIMVASTATIN
     Indication: BODY FAT DISORDER
     Dosage: 5 MILLIGRAM DAILY; 5MG
     Route: 048
     Dates: start: 2002
  11. DEXAMETHASONE. [Suspect]
     Active Substance: DEXAMETHASONE
     Indication: PLASMA CELL MYELOMA
     Dosage: NOT PROVIDED
     Route: 048
     Dates: start: 20151118, end: 20160615
  12. POMALIDOMIDE [Suspect]
     Active Substance: POMALIDOMIDE
     Indication: PLASMA CELL MYELOMA
     Dosage: 3 MG
     Route: 048
     Dates: start: 20160309, end: 20160628
  13. EPOETIN [Concomitant]
     Active Substance: ERYTHROPOIETIN
     Indication: ANAEMIA
     Dosage: 3000IU
     Route: 058
     Dates: start: 20151118
  14. KATADOLON [Concomitant]
     Active Substance: FLUPIRTINE
     Indication: PAIN
     Dosage: 5 MILLIGRAM DAILY; 5MG
     Route: 048
  15. PANTOPRAZOL-RATIOPHARM [Concomitant]
     Indication: PROPHYLAXIS
     Dosage: 20 MILLIGRAM DAILY; 20MG
     Route: 048
  16. DEKRISTOL [Concomitant]
     Active Substance: CHOLECALCIFEROL
     Indication: OSTEOPOROSIS
     Dosage: 2000IU
     Route: 048
     Dates: start: 2010
  17. EPO [Concomitant]
     Active Substance: ERYTHROPOIETIN
     Indication: PRODUCT USED FOR UNKNOWN INDICATION
     Route: 065
     Dates: start: 20151125, end: 20161220
  18. REVLIMID [Suspect]
     Active Substance: LENALIDOMIDE
     Indication: PLASMA CELL MYELOMA
     Route: 048
     Dates: start: 201303, end: 201508
  19. POMALIDOMIDE [Suspect]
     Active Substance: POMALIDOMIDE
     Dosage: 3 MG
     Route: 048
     Dates: start: 20151119, end: 20160223
  20. BROMAZEPAM RATIOPHARM [Concomitant]
     Indication: DISTURBANCE IN ATTENTION
     Dosage: 6 MILLIGRAM DAILY; 6MG
     Route: 048
     Dates: start: 2012

REACTIONS (1)
  - Acute myeloid leukaemia [Not Recovered/Not Resolved]

NARRATIVE: CASE EVENT DATE: 20161130
